FAERS Safety Report 21675367 (Version 1)
Quarter: 2022Q4

REPORT INFORMATION
  Report Type: Spontaneous
  Country: US (occurrence: US)
  Receive Date: 20221202
  Receipt Date: 20221202
  Transmission Date: 20230113
  Serious: Yes (Other)
  Sender: FDA-Public Use
  Company Number: US-drreddys-LIT/USA/22/0157757

PATIENT
  Age: 54 Year
  Sex: Male

DRUGS (3)
  1. LENALIDOMIDE [Suspect]
     Active Substance: LENALIDOMIDE
     Indication: Plasma cell myeloma
  2. DEXAMETHASONE SODIUM PHOSPHATE [Suspect]
     Active Substance: DEXAMETHASONE SODIUM PHOSPHATE
     Indication: Plasma cell myeloma
  3. PREGABALIN [Suspect]
     Active Substance: PREGABALIN
     Indication: Rash

REACTIONS (6)
  - Plasma cell myeloma [Unknown]
  - Interleukin level increased [Unknown]
  - Rash [Unknown]
  - Eosinophilia [Unknown]
  - Drug ineffective [Unknown]
  - Product use in unapproved indication [Unknown]
